FAERS Safety Report 11402217 (Version 1)
Quarter: 2015Q3

REPORT INFORMATION
  Report Type: Spontaneous
  Country: US (occurrence: US)
  Receive Date: 20150821
  Receipt Date: 20150821
  Transmission Date: 20151125
  Serious: No
  Sender: FDA-Public Use
  Company Number: US-ROCHE-1343043

PATIENT
  Sex: Male
  Weight: 72.64 kg

DRUGS (3)
  1. PEGASYS [Suspect]
     Active Substance: PEGINTERFERON ALFA-2A
     Indication: CHRONIC HEPATITIS C
     Route: 065
     Dates: start: 20130806, end: 20140114
  2. RIBAVIRIN. [Suspect]
     Active Substance: RIBAVIRIN
     Indication: CHRONIC HEPATITIS C
     Dosage: DIVIDED DOSES ORALLY 600/400
     Route: 048
     Dates: start: 20130806, end: 2014
  3. METFORMIN [Concomitant]
     Active Substance: METFORMIN HYDROCHLORIDE
     Route: 065

REACTIONS (11)
  - Insomnia [Unknown]
  - Weight decreased [Unknown]
  - Dyspnoea [Unknown]
  - Arthralgia [Unknown]
  - Back pain [Not Recovered/Not Resolved]
  - Alopecia [Unknown]
  - Headache [Unknown]
  - Chest pain [Unknown]
  - Pruritus [Unknown]
  - Injection site pruritus [Unknown]
  - Fatigue [Unknown]
